FAERS Safety Report 19322706 (Version 3)
Quarter: 2021Q3

REPORT INFORMATION
  Report Type: Spontaneous
  Country: RU (occurrence: RU)
  Receive Date: 20210527
  Receipt Date: 20210729
  Transmission Date: 20211014
  Serious: Yes (Other)
  Sender: FDA-Public Use
  Company Number: RU-BAXTER-2021BAX013465

PATIENT
  Age: 5 Month
  Sex: Male

DRUGS (1)
  1. DOXIL [Suspect]
     Active Substance: DOXORUBICIN HYDROCHLORIDE
     Indication: RHABDOMYOSARCOMA
     Route: 042

REACTIONS (3)
  - Drug ineffective [Unknown]
  - Ventricular fibrillation [Recovered/Resolved]
  - Application site infection [Unknown]
